FAERS Safety Report 8179379-3 (Version None)
Quarter: 2012Q1

REPORT INFORMATION
  Report Type: 
  Country: None (occurrence: None)
  Receive Date: 20120302
  Receipt Date: 20120224
  Transmission Date: 20120608
  Serious: Yes (Other)
  Sender: FDA-Public Use
  Company Number: US-ABBOTT-12P-163-0909099-00

PATIENT
  Sex: Female
  Weight: 74.456 kg

DRUGS (5)
  1. LISINOPRIL [Concomitant]
     Indication: HYPERTENSION
  2. METOPROLOL SUCCINATE [Concomitant]
     Indication: HYPERTENSION
  3. PROZAC [Concomitant]
     Indication: DEPRESSION
  4. HUMIRA [Suspect]
     Indication: PSORIASIS
     Dates: start: 20110801, end: 20111201
  5. ELAVIL [Concomitant]
     Indication: DEPRESSION

REACTIONS (12)
  - FALL [None]
  - DYSPNOEA [None]
  - ARTERIOSCLEROSIS CORONARY ARTERY [None]
  - PAIN [None]
  - PSORIASIS [None]
  - PRURITUS [None]
  - ALOPECIA [None]
  - CHEST PAIN [None]
  - BALANCE DISORDER [None]
  - PAIN IN EXTREMITY [None]
  - EXERCISE TOLERANCE DECREASED [None]
  - GAIT DISTURBANCE [None]
